FAERS Safety Report 17571231 (Version 1)
Quarter: 2020Q1

REPORT INFORMATION
  Report Type: Spontaneous
  Country: CN (occurrence: CN)
  Receive Date: 20200323
  Receipt Date: 20200323
  Transmission Date: 20200409
  Serious: Yes (Life-Threatening, Hospitalization, Other)
  Sender: FDA-Public Use
  Company Number: CN-PFIZER INC-2020118984

PATIENT
  Age: 33 Year
  Sex: Female
  Weight: 49 kg

DRUGS (7)
  1. PEGASPARGASE [Suspect]
     Active Substance: PEGASPARGASE
     Indication: LYMPHOCYTIC LEUKAEMIA
     Dosage: 3750 UNK, 1X/DAY
     Route: 030
     Dates: start: 20200212, end: 20200213
  2. SODIUM CHLORIDE. [Concomitant]
     Active Substance: SODIUM CHLORIDE
     Dosage: 100 ML, 1X/DAY
     Dates: start: 20200212, end: 20200213
  3. MERCAPTOPURINE. [Suspect]
     Active Substance: MERCAPTOPURINE
     Indication: LYMPHOCYTIC LEUKAEMIA
     Dosage: 100 MG, 1X/DAY
     Route: 048
     Dates: start: 20200212, end: 20200218
  4. EPIDAZA [Suspect]
     Active Substance: TUCIDINOSTAT
     Indication: LYMPHOCYTIC LEUKAEMIA
     Dosage: 10 MG, 1X/DAY
     Route: 048
     Dates: start: 20200212, end: 20200306
  5. CYTOSAR [Suspect]
     Active Substance: CYTARABINE
     Indication: LYMPHOCYTIC LEUKAEMIA
     Dosage: 4.5 G, 2X/DAY
     Route: 041
     Dates: start: 20200212, end: 20200213
  6. DEXAMETHASONE SODIUM PHOSPHATE. [Concomitant]
     Active Substance: DEXAMETHASONE SODIUM PHOSPHATE
     Indication: ACUTE LYMPHOCYTIC LEUKAEMIA
     Dosage: 15 MG, 1X/DAY
     Route: 041
     Dates: start: 20200212, end: 20200213
  7. SODIUM CHLORIDE. [Concomitant]
     Active Substance: SODIUM CHLORIDE
     Indication: LYMPHOCYTIC LEUKAEMIA
     Dosage: 500 ML, 2X/DAY
     Route: 041
     Dates: start: 20200212, end: 20200213

REACTIONS (6)
  - C-reactive protein increased [Recovering/Resolving]
  - Asthenia [Unknown]
  - Blood potassium decreased [Recovering/Resolving]
  - Haematochezia [Recovering/Resolving]
  - Bone marrow failure [Recovering/Resolving]
  - Full blood count decreased [Recovering/Resolving]

NARRATIVE: CASE EVENT DATE: 20200219
